FAERS Safety Report 6085615-X (Version None)
Quarter: 2009Q1

REPORT INFORMATION
  Report Type: 
  Country: None (occurrence: None)
  Receive Date: 20090220
  Receipt Date: 20090212
  Transmission Date: 20090719
  Serious: Yes (Hospitalization)
  Sender: FDA-Public Use
  Company Number: US-JNJFOC-20090203911

PATIENT
  Sex: Female

DRUGS (4)
  1. TYLENOL SINUS CONGESTION + PAIN DAYTIME COOL BURST [Suspect]
     Indication: DIARRHOEA
  2. TYLENOL SINUS CONGESTION + PAIN DAYTIME COOL BURST [Suspect]
     Indication: SINUS HEADACHE
  3. TYLENOL SINUS CONGESTION + PAIN NIGHTTIME COOL BURST [Suspect]
     Indication: DIARRHOEA
  4. TYLENOL SINUS CONGESTION + PAIN NIGHTTIME COOL BURST [Suspect]
     Indication: SINUS HEADACHE

REACTIONS (2)
  - HEPATITIS C [None]
  - OVERDOSE [None]
